FAERS Safety Report 9610665 (Version 2)
Quarter: 2014Q2

REPORT INFORMATION
  Report Type: Spontaneous
  Country: US (occurrence: US)
  Receive Date: 20131009
  Receipt Date: 20140502
  Transmission Date: 20141212
  Serious: Yes (Other)
  Sender: FDA-Public Use
  Company Number: US-PFIZER INC-2013286128

PATIENT
  Age: 56 Year
  Sex: Female

DRUGS (2)
  1. GEODON [Suspect]
     Dosage: 80 MG, 1X/DAY
     Route: 048
     Dates: start: 2008, end: 201205
  2. ZYPREXA [Suspect]
     Dosage: 25 MG, 1X/DAY
     Route: 048
     Dates: start: 1998

REACTIONS (5)
  - Breast cancer recurrent [Recovered/Resolved]
  - Delusion [Unknown]
  - White blood cell count decreased [Recovered/Resolved]
  - Platelet count decreased [Unknown]
  - Neutrophil count decreased [Recovered/Resolved]
